FAERS Safety Report 21392999 (Version 1)
Quarter: 2022Q3

REPORT INFORMATION
  Report Type: Spontaneous
  Country: PL (occurrence: PL)
  Receive Date: 20220929
  Receipt Date: 20220929
  Transmission Date: 20221027
  Serious: Yes (Death, Hospitalization)
  Sender: FDA-Public Use
  Company Number: PL-AMNEAL PHARMACEUTICALS-2022-AMRX-02605

PATIENT
  Age: 82 Year
  Sex: Male
  Weight: 67 kg

DRUGS (1)
  1. PENTOXIFYLLINE [Suspect]
     Active Substance: PENTOXIFYLLINE
     Indication: Pulmonary arterial hypertension
     Dosage: 28 GRAM
     Route: 065

REACTIONS (3)
  - Respiratory failure [Fatal]
  - Poisoning [Fatal]
  - Vomiting [Unknown]
